FAERS Safety Report 5228306-7 (Version None)
Quarter: 2007Q1

REPORT INFORMATION
  Report Type: 
  Country: None (occurrence: None)
  Receive Date: 20070131
  Receipt Date: 20070131
  Transmission Date: 20070707
  Serious: Yes (Life-Threatening)
  Sender: FDA-Public Use
  Company Number: None

PATIENT
  Age: 57 Year
  Sex: Female

DRUGS (8)
  1. MORPHINE [Suspect]
     Indication: MIGRAINE
     Dosage: 4 MG PER HOUR IV
     Route: 042
  2. VERAPAMIL [Concomitant]
  3. VALIUM [Concomitant]
  4. PHENERGAN [Concomitant]
  5. LIDOCAINE [Concomitant]
  6. TOPIRATE [Concomitant]
  7. REGLAN [Concomitant]
  8. COMPAZINE [Concomitant]

REACTIONS (2)
  - LOSS OF CONSCIOUSNESS [None]
  - RESPIRATORY RATE DECREASED [None]
